FAERS Safety Report 13555011 (Version 2)
Quarter: 2017Q2

REPORT INFORMATION
  Report Type: Spontaneous
  Country: US (occurrence: US)
  Receive Date: 20170517
  Receipt Date: 20170608
  Transmission Date: 20170830
  Serious: No
  Sender: FDA-Public Use
  Company Number: US-BAYER-2017-093125

PATIENT
  Age: 48 Year
  Sex: Female

DRUGS (1)
  1. MIRENA [Suspect]
     Active Substance: LEVONORGESTREL
     Dosage: 20 MCG/24HR, CONT
     Route: 015
     Dates: start: 20161019, end: 20161130

REACTIONS (6)
  - Irritability [None]
  - Abdominal distension [None]
  - Medical device site discomfort [None]
  - Medical device site pain [None]
  - Device difficult to use [None]
  - Dysmenorrhoea [None]

NARRATIVE: CASE EVENT DATE: 2016
